FAERS Safety Report 5306859-8 (Version None)
Quarter: 2007Q2

REPORT INFORMATION
  Report Type: 
  Country: None (occurrence: None)
  Receive Date: 20070425
  Receipt Date: 20070412
  Transmission Date: 20071010
  Serious: Yes (Other)
  Sender: FDA-Public Use
  Company Number: PHBS2007US06904

PATIENT

DRUGS (6)
  1. RISPERDAL [Suspect]
     Route: 064
  2. CLOXAZOLAM [Concomitant]
     Route: 064
  3. CHLORPROMAZINE [Concomitant]
     Route: 064
  4. PROMETHAZINE [Concomitant]
     Route: 064
  5. PHENOBARBITAL TAB [Concomitant]
     Route: 064
  6. CARBAMAZEPINE [Suspect]
     Route: 064

REACTIONS (6)
  - BRADYCARDIA [None]
  - DRUG EXPOSURE DURING PREGNANCY [None]
  - DRUG WITHDRAWAL CONVULSIONS [None]
  - DYSPHAGIA [None]
  - FOETAL DISTRESS SYNDROME [None]
  - HAEMORRHAGE INTRACRANIAL [None]
